FAERS Safety Report 5661167-0 (Version None)
Quarter: 2008Q1

REPORT INFORMATION
  Report Type: 
  Country: None (occurrence: None)
  Receive Date: 20080303
  Receipt Date: 20080219
  Transmission Date: 20080703
  Serious: Yes (Other)
  Sender: FDA-Public Use
  Company Number: CHPA2008US03294

PATIENT
  Sex: Female

DRUGS (5)
  1. NICOTINE [Suspect]
     Indication: SMOKING CESSATION THERAPY
     Dosage: 21 MG, QD
     Dates: start: 20071225
  2. RADIATION THERAPY (NO INGREDIENTS/SUBSTANCES) [Concomitant]
  3. OMEPRAZOLE [Concomitant]
  4. NAPROXEN [Concomitant]
  5. DRUG THERAPY NOS (DRUG THERAPY NOS) [Concomitant]

REACTIONS (3)
  - LYMPHOEDEMA [None]
  - OEDEMA PERIPHERAL [None]
  - SWELLING [None]
